FAERS Safety Report 18699679 (Version 2)
Quarter: 2021Q1

REPORT INFORMATION
  Report Type: Spontaneous
  Country: US (occurrence: US)
  Receive Date: 20210105
  Receipt Date: 20210208
  Transmission Date: 20210419
  Serious: Yes (Other)
  Sender: FDA-Public Use
  Company Number: US-DRREDDYS-USA/USA/20/0130699

PATIENT
  Age: 68 Year
  Sex: Male

DRUGS (1)
  1. SEVELAMER CARBONATE TABLETS, 800 MG [Suspect]
     Active Substance: SEVELAMER CARBONATE
     Indication: END STAGE RENAL DISEASE

REACTIONS (2)
  - Rectal ulcer haemorrhage [Recovered/Resolved]
  - Large intestinal ulcer [Recovered/Resolved]
